FAERS Safety Report 5000210-9 (Version None)
Quarter: 2006Q2

REPORT INFORMATION
  Report Type: 
  Country: None (occurrence: None)
  Receive Date: 20060511
  Receipt Date: 20060501
  Transmission Date: 20061013
  Serious: Yes (Hospitalization)
  Sender: FDA-Public Use
  Company Number: US-ABBOTT-06P-163-0332088-00

PATIENT
  Sex: Female
  Weight: 54.48 kg

DRUGS (5)
  1. HUMIRA [Suspect]
     Indication: RHEUMATOID ARTHRITIS
     Route: 058
     Dates: start: 20031016, end: 20060426
  2. PREDNISONE TAB [Concomitant]
     Indication: RHEUMATOID ARTHRITIS
     Route: 048
  3. SERTRALINE HYDROCHLORIDE [Concomitant]
     Indication: DEPRESSION
     Route: 048
  4. PANTOPRAZOLE [Concomitant]
     Indication: GASTROOESOPHAGEAL REFLUX DISEASE
     Route: 048
  5. BONIVA [Concomitant]
     Indication: OSTEOPOROSIS PROPHYLAXIS
     Route: 048

REACTIONS (3)
  - PAIN [None]
  - POST PROCEDURAL HAEMATOMA [None]
  - SPLENIC RUPTURE [None]
